FAERS Safety Report 17143510 (Version 1)
Quarter: 2019Q4

REPORT INFORMATION
  Report Type: Spontaneous
  Country: US (occurrence: US)
  Receive Date: 20191211
  Receipt Date: 20191211
  Transmission Date: 20200122
  Serious: Yes (Other)
  Sender: FDA-Public Use
  Company Number: US-AMERICAN REGENT INC-20190799

PATIENT
  Age: 78 Year
  Sex: Male

DRUGS (26)
  1. VENOFER [Suspect]
     Active Substance: IRON SUCROSE
     Dosage: 50 MG
     Route: 042
     Dates: start: 20181211
  2. VENOFER [Suspect]
     Active Substance: IRON SUCROSE
     Dosage: 50 MG
     Route: 042
     Dates: start: 20190226
  3. VENOFER [Suspect]
     Active Substance: IRON SUCROSE
     Dosage: 50 MG
     Route: 042
     Dates: start: 20190312
  4. VENOFER [Suspect]
     Active Substance: IRON SUCROSE
     Dosage: 100 MG
     Route: 042
     Dates: start: 20190409
  5. MIRCERA [Suspect]
     Active Substance: METHOXY POLYETHYLENE GLYCOL-EPOETIN BETA
     Dosage: 150 MCG
     Route: 065
     Dates: start: 20190302, end: 20190330
  6. VENOFER [Suspect]
     Active Substance: IRON SUCROSE
     Dosage: 50 MG
     Route: 042
     Dates: start: 20190108
  7. MIRCERA [Suspect]
     Active Substance: METHOXY POLYETHYLENE GLYCOL-EPOETIN BETA
     Dosage: 50 MCG
     Route: 065
     Dates: start: 20181013
  8. VENOFER [Suspect]
     Active Substance: IRON SUCROSE
     Dosage: 50 MG
     Route: 042
     Dates: start: 20190122
  9. VENOFER [Suspect]
     Active Substance: IRON SUCROSE
     Dosage: 50 MG
     Route: 042
     Dates: start: 20190129
  10. VENOFER [Suspect]
     Active Substance: IRON SUCROSE
     Dosage: 100 MG
     Route: 042
     Dates: start: 20190326
  11. VENOFER [Suspect]
     Active Substance: IRON SUCROSE
     Indication: PRODUCT USED FOR UNKNOWN INDICATION
     Dosage: 100 MG
     Route: 042
     Dates: start: 20181201
  12. VENOFER [Suspect]
     Active Substance: IRON SUCROSE
     Dosage: 50 MG
     Route: 042
     Dates: start: 20190115
  13. VENOFER [Suspect]
     Active Substance: IRON SUCROSE
     Dosage: 50 MG
     Route: 042
     Dates: start: 20190212
  14. VENOFER [Suspect]
     Active Substance: IRON SUCROSE
     Dosage: 50 MG
     Route: 042
     Dates: start: 20190305
  15. VENOFER [Suspect]
     Active Substance: IRON SUCROSE
     Dosage: 100 MG
     Route: 042
     Dates: start: 20190402
  16. VENOFER [Suspect]
     Active Substance: IRON SUCROSE
     Dosage: 50 MG
     Route: 042
     Dates: start: 20181218
  17. VENOFER [Suspect]
     Active Substance: IRON SUCROSE
     Dosage: 50 MG
     Route: 042
     Dates: start: 20190319
  18. MIRCERA [Suspect]
     Active Substance: METHOXY POLYETHYLENE GLYCOL-EPOETIN BETA
     Dosage: 60 MCG
     Route: 065
     Dates: start: 20181117
  19. MIRCERA [Suspect]
     Active Substance: METHOXY POLYETHYLENE GLYCOL-EPOETIN BETA
     Dosage: 75 MCG
     Route: 065
     Dates: start: 20181201
  20. MIRCERA [Suspect]
     Active Substance: METHOXY POLYETHYLENE GLYCOL-EPOETIN BETA
     Dosage: 75 MCG
     Route: 065
     Dates: start: 20190119
  21. VENOFER [Suspect]
     Active Substance: IRON SUCROSE
     Dosage: 50 MG
     Route: 042
     Dates: start: 20190205
  22. VENOFER [Suspect]
     Active Substance: IRON SUCROSE
     Dosage: 50 MG
     Route: 042
     Dates: start: 20190219
  23. ACE INHIBITORS [Concomitant]
     Active Substance: UNSPECIFIED INGREDIENT
     Indication: PRODUCT USED FOR UNKNOWN INDICATION
     Dosage: UNKNOWN
     Route: 065
  24. MIRCERA [Suspect]
     Active Substance: METHOXY POLYETHYLENE GLYCOL-EPOETIN BETA
     Dosage: 75 MCG
     Route: 065
     Dates: start: 20190105
  25. MIRCERA [Suspect]
     Active Substance: METHOXY POLYETHYLENE GLYCOL-EPOETIN BETA
     Dosage: 100 MCG
     Route: 065
     Dates: start: 20190202, end: 20190302
  26. MIRCERA [Suspect]
     Active Substance: METHOXY POLYETHYLENE GLYCOL-EPOETIN BETA
     Dosage: 200 MCG
     Route: 065
     Dates: start: 20190330

REACTIONS (3)
  - Gastrointestinal haemorrhage [Unknown]
  - Haemoglobin decreased [Unknown]
  - Therapy non-responder [Unknown]

NARRATIVE: CASE EVENT DATE: 20181222
